FAERS Safety Report 22292676 (Version 1)
Quarter: 2023Q2

REPORT INFORMATION
  Report Type: Spontaneous
  Country: US (occurrence: US)
  Receive Date: 20230508
  Receipt Date: 20230508
  Transmission Date: 20230721
  Serious: Yes (Death, Hospitalization, Other)
  Sender: FDA-Public Use
  Company Number: US-009507513-2305USA001702

PATIENT
  Age: 80 Year
  Sex: Male

DRUGS (1)
  1. KEYTRUDA [Suspect]
     Active Substance: PEMBROLIZUMAB
     Dosage: UNK

REACTIONS (7)
  - Death [Fatal]
  - Acidosis [Unknown]
  - Hypercapnia [Unknown]
  - Septic shock [Unknown]
  - Myasthenia gravis [Unknown]
  - Escherichia infection [Unknown]
  - Disease recurrence [Unknown]
